FAERS Safety Report 22225803 (Version 2)
Quarter: 2023Q2

REPORT INFORMATION
  Report Type: Report from Study
  Country: US (occurrence: US)
  Receive Date: 20230418
  Receipt Date: 20230428
  Transmission Date: 20230722
  Serious: Yes (Hospitalization)
  Sender: FDA-Public Use
  Company Number: US-ABBVIE-4733082

PATIENT
  Age: 85 Year
  Sex: Female

DRUGS (4)
  1. VENCLEXTA [Suspect]
     Active Substance: VENETOCLAX
     Indication: Acute myeloid leukaemia
     Dosage: FORM STRENGTH WAS 50 MILLIGRAMS
     Route: 048
     Dates: start: 20230329
  2. VENCLEXTA [Suspect]
     Active Substance: VENETOCLAX
     Indication: Acute myeloid leukaemia
     Dosage: FORM STRENGTH WAS 100 MILLIGRAMS
     Route: 048
     Dates: start: 20230319, end: 20230325
  3. VENCLEXTA [Suspect]
     Active Substance: VENETOCLAX
     Indication: Acute myeloid leukaemia
     Dosage: FORM STRENGTH WAS 50 MILLIGRAMS
     Route: 048
  4. VENCLEXTA [Suspect]
     Active Substance: VENETOCLAX
     Indication: Acute myeloid leukaemia
     Route: 048
     Dates: start: 202302

REACTIONS (8)
  - Loss of consciousness [Recovering/Resolving]
  - Faecaloma [Unknown]
  - Diarrhoea [Not Recovered/Not Resolved]
  - Constipation [Unknown]
  - Weight decreased [Unknown]
  - Toxicity to various agents [Unknown]
  - Malnutrition [Unknown]
  - Dehydration [Unknown]

NARRATIVE: CASE EVENT DATE: 20230201
